FAERS Safety Report 18822721 (Version 5)
Quarter: 2021Q4

REPORT INFORMATION
  Report Type: Spontaneous
  Country: PT (occurrence: PT)
  Receive Date: 20210202
  Receipt Date: 20211208
  Transmission Date: 20220303
  Serious: Yes (Hospitalization, Other)
  Sender: FDA-Public Use
  Company Number: NVSC2021PT023096

PATIENT
  Age: 53 Year
  Sex: Female

DRUGS (8)
  1. ADALIMUMAB [Suspect]
     Active Substance: ADALIMUMAB
     Indication: Enteropathic spondylitis
     Dosage: UNK
     Route: 065
  2. ADALIMUMAB [Suspect]
     Active Substance: ADALIMUMAB
     Indication: Spondylitis
  3. REMICADE [Suspect]
     Active Substance: INFLIXIMAB
     Indication: Enteropathic spondylitis
     Dosage: UNK
     Route: 042
  4. REMICADE [Suspect]
     Active Substance: INFLIXIMAB
     Indication: Spondylitis
  5. SULFASALAZINE [Concomitant]
     Active Substance: SULFASALAZINE
     Indication: Product used for unknown indication
     Dosage: 2 G, QD
     Route: 065
  6. DEFLAZACORT [Concomitant]
     Active Substance: DEFLAZACORT
     Indication: Spondylitis
     Dosage: 15 MG, QD
     Route: 065
  7. DEFLAZACORT [Concomitant]
     Active Substance: DEFLAZACORT
     Dosage: 12 MG, QD
     Route: 065
  8. CELECOXIB [Concomitant]
     Active Substance: CELECOXIB
     Indication: Spondylitis
     Dosage: 100 MG, QD
     Route: 065

REACTIONS (14)
  - Granulomatosis with polyangiitis [Recovered/Resolved]
  - Decreased appetite [Unknown]
  - Microcytic anaemia [Recovered/Resolved]
  - Malaise [Unknown]
  - Antineutrophil cytoplasmic antibody positive [Unknown]
  - Sinusitis [Unknown]
  - Psoriasis [Unknown]
  - Glomerulonephritis rapidly progressive [Unknown]
  - Proteinuria [Unknown]
  - Tubulointerstitial nephritis [Unknown]
  - Paradoxical psoriasis [Unknown]
  - Spondylitis [Unknown]
  - Vasculitis [Unknown]
  - Product use in unapproved indication [Unknown]
